FAERS Safety Report 18562268 (Version 1)
Quarter: 2020Q4

REPORT INFORMATION
  Report Type: Spontaneous
  Country: CN (occurrence: CN)
  Receive Date: 20201130
  Receipt Date: 20201130
  Transmission Date: 20210114
  Serious: Yes (Other)
  Sender: FDA-Public Use
  Company Number: CN-009507513-2011CHN014290

PATIENT
  Age: 54 Year
  Sex: Male
  Weight: 72 kg

DRUGS (6)
  1. PACLITAXEL. [Concomitant]
     Active Substance: PACLITAXEL
     Dosage: TP REGIMEN (TWO MONTHS AFTER SURGERY)
     Dates: start: 201907
  2. CISPLATIN. [Concomitant]
     Active Substance: CISPLATIN
     Indication: NON-SMALL CELL LUNG CANCER STAGE III
     Dosage: PACLITAXEL LIPOSOME COMBINED WITH PLATINUM, DAYS 1 AND 22 (7 DAYS AFTER DIAGNOSIS)
     Dates: start: 2019
  3. PEMBROLIZUMAB. [Suspect]
     Active Substance: PEMBROLIZUMAB
     Indication: NON-SMALL CELL LUNG CANCER STAGE III
     Dosage: 2 CYCLES OF 200 MILLIGRAM (+) TP REGIMEN, DAYS 1 AND 22 (7 DAYS AFTER DIAGNOSIS)
     Dates: start: 2019
  4. PACLITAXEL. [Concomitant]
     Active Substance: PACLITAXEL
     Indication: NON-SMALL CELL LUNG CANCER STAGE III
     Dosage: PACLITAXEL LIPOSOME COMBINED WITH PLATINUM, DAYS 1 AND 22 (7 DAYS AFTER DIAGNOSIS)
     Dates: start: 2019
  5. CISPLATIN. [Concomitant]
     Active Substance: CISPLATIN
     Dosage: TP REGIMEN (TWO MONTHS AFTER SURGERY)
     Dates: start: 201907
  6. PEMBROLIZUMAB. [Suspect]
     Active Substance: PEMBROLIZUMAB
     Dosage: ADJUVANT THERAPY WITH TP REGIMEN (TWO MONTHS AFTER SURGERY)
     Dates: start: 201907

REACTIONS (1)
  - Tumour pseudoprogression [Recovered/Resolved]

NARRATIVE: CASE EVENT DATE: 20190524
